FAERS Safety Report 5254074-9 (Version None)
Quarter: 2007Q1

REPORT INFORMATION
  Report Type: 
  Country: None (occurrence: None)
  Receive Date: 20070302
  Receipt Date: 20070228
  Transmission Date: 20070707
  Serious: Yes (Other)
  Sender: FDA-Public Use
  Company Number: US-AVENTIS-200711302US

PATIENT

DRUGS (2)
  1. LOVENOX [Suspect]
     Dosage: DOSE: UNK
  2. UNKNOWN DRUG [Concomitant]

REACTIONS (1)
  - DISSEMINATED INTRAVASCULAR COAGULATION [None]
